FAERS Safety Report 8525416-3 (Version None)
Quarter: 2012Q3

REPORT INFORMATION
  Report Type: 
  Country: None (occurrence: None)
  Receive Date: 20120720
  Receipt Date: 20120719
  Transmission Date: 20120928
  Serious: Yes (Hospitalization)
  Sender: FDA-Public Use
  Company Number: PHHO2010DE07672

PATIENT
  Sex: Female

DRUGS (3)
  1. METHOTREXATE [Suspect]
     Dosage: UNK
     Dates: start: 20100201
  2. IMATINIB MESYLATE [Suspect]
     Indication: CHRONIC MYELOID LEUKAEMIA
     Dosage: 400 MG
     Route: 048
     Dates: start: 20001011
  3. METHYLPREDNISOLONE [Concomitant]
     Indication: POLYARTHRITIS

REACTIONS (3)
  - ABDOMINAL PAIN [None]
  - OEDEMATOUS PANCREATITIS [None]
  - PLEURAL EFFUSION [None]
